FAERS Safety Report 8152333-3 (Version None)
Quarter: 2012Q1

REPORT INFORMATION
  Report Type: 
  Country: None (occurrence: None)
  Receive Date: 20120221
  Receipt Date: 20120213
  Transmission Date: 20120608
  Serious: Yes (Other)
  Sender: FDA-Public Use
  Company Number: US-BAYER-2011-041921

PATIENT
  Age: 26 Year
  Sex: Female
  Weight: 61 kg

DRUGS (7)
  1. LORTAB [Concomitant]
     Indication: ABDOMINAL PAIN
     Dosage: UNK
     Dates: start: 20050101, end: 20070101
  2. PEPTOL [Concomitant]
     Indication: ABDOMINAL DISCOMFORT
     Dosage: UNK
     Dates: start: 20051029
  3. REPLIVA [Concomitant]
     Dosage: UNK
     Dates: start: 20030101
  4. MINOCYCLINE HCL [Concomitant]
     Indication: ACNE
     Dosage: UNK
     Dates: start: 19980101
  5. YASMIN [Suspect]
     Indication: CONTRACEPTION
     Dosage: UNK
     Dates: start: 20020501, end: 20060401
  6. MIRCETTE [Concomitant]
     Dosage: UNK
     Dates: start: 20050426, end: 20050602
  7. LORTAB [Concomitant]
     Indication: ABDOMINAL PAIN UPPER

REACTIONS (13)
  - PAIN [None]
  - GENERAL PHYSICAL HEALTH DETERIORATION [None]
  - ACNE [None]
  - EMOTIONAL DISTRESS [None]
  - CHOLECYSTITIS [None]
  - INJURY [None]
  - DIARRHOEA [None]
  - ABDOMINAL PAIN [None]
  - GASTROENTERITIS [None]
  - ANXIETY [None]
  - GALLBLADDER DISORDER [None]
  - VOMITING [None]
  - DEHYDRATION [None]
